FAERS Safety Report 8766546 (Version 1)
Quarter: 2012Q4

REPORT INFORMATION
  Report Type: 
  Country: US (occurrence: US)
  Receive Date: 20120904
  Receipt Date: 20120904
  Transmission Date: 20130627
  Serious: Yes (Death, Other)
  Sender: FDA-Public Use
  Company Number: PHHY2012US075912

PATIENT
  Age: 38 Year
  Sex: Male

DRUGS (3)
  1. AZATHIOPRINE [Suspect]
     Indication: IMMUNOSUPPRESSANT DRUG THERAPY
     Dosage: 50 mg, UNK
  2. PREDNISONE [Suspect]
     Indication: IMMUNOSUPPRESSANT DRUG THERAPY
     Dosage: 15 mg, UNK
  3. PREDNISONE [Suspect]
     Dosage: 120 mg, UNK

REACTIONS (17)
  - Herpes zoster [Fatal]
  - Disseminated intravascular coagulation [Fatal]
  - Blister [Fatal]
  - Rash maculo-papular [Fatal]
  - Rash erythematous [Fatal]
  - Rash pustular [Fatal]
  - Pruritus [Fatal]
  - Herpes ophthalmic [Unknown]
  - Cellulitis staphylococcal [Recovering/Resolving]
  - Molluscum contagiosum [Recovering/Resolving]
  - Furuncle [Recovering/Resolving]
  - Hydronephrosis [Unknown]
  - Calculus urinary [Unknown]
  - Abdominal pain [Unknown]
  - Oral candidiasis [Unknown]
  - Oesophageal candidiasis [Unknown]
  - Diabetes mellitus [Recovering/Resolving]
